FAERS Safety Report 4654612-0 (Version None)
Quarter: 2005Q2

REPORT INFORMATION
  Report Type: 
  Country: None (occurrence: None)
  Receive Date: 20050404
  Receipt Date: 20041203
  Transmission Date: 20051028
  Serious: No
  Sender: FDA-Public Use
  Company Number: USA041285269

PATIENT
  Age: 63 Year
  Sex: Female

DRUGS (5)
  1. CYMBALTA [Suspect]
     Indication: DEPRESSION
     Dosage: 90 MG DAY
     Dates: start: 20040901
  2. ASPIRIN [Concomitant]
  3. MAXZIDE [Concomitant]
  4. MULTI-VITAMINS [Concomitant]
  5. BENAZEPRIL [Concomitant]

REACTIONS (2)
  - NAUSEA [None]
  - PRESCRIBED OVERDOSE [None]
